FAERS Safety Report 12906635 (Version 1)
Quarter: 2016Q4

REPORT INFORMATION
  Report Type: Spontaneous
  Country: US (occurrence: US)
  Receive Date: 20161101
  Receipt Date: 20161101
  Transmission Date: 20170207
  Serious: Yes (Other)
  Sender: FDA-Public Use
  Company Number: None

PATIENT
  Age: 58 Year
  Sex: Female
  Weight: 60.75 kg

DRUGS (5)
  1. VITAMIN D [Concomitant]
     Active Substance: CHOLECALCIFEROL
  2. RECLAST [Suspect]
     Active Substance: ZOLEDRONIC ACID
     Indication: OSTEOPOROSIS
     Dosage: ?          OTHER FREQUENCY:ONCE A YEAR;?
     Route: 042
     Dates: start: 20161011, end: 20161011
  3. AROMATASE INHIBITOR [Concomitant]
     Active Substance: UNSPECIFIED INGREDIENT
  4. MULTIVITAMIN [Concomitant]
     Active Substance: VITAMINS
  5. BIOTIN [Concomitant]
     Active Substance: BIOTIN

REACTIONS (3)
  - Myalgia [None]
  - Influenza like illness [None]
  - Scleritis [None]

NARRATIVE: CASE EVENT DATE: 20161015
